FAERS Safety Report 14173307 (Version 1)
Quarter: 2017Q4

REPORT INFORMATION
  Report Type: Spontaneous
  Country: US (occurrence: None)
  Receive Date: 20171109
  Receipt Date: 20171109
  Transmission Date: 20180321
  Serious: Yes (Hospitalization)
  Sender: FDA-Public Use
  Company Number: None

PATIENT
  Age: 78 Year
  Sex: Male
  Weight: 93.89 kg

DRUGS (1)
  1. CASODEX [Suspect]
     Active Substance: BICALUTAMIDE
     Dates: end: 20171010

REACTIONS (6)
  - Colitis [None]
  - Dehydration [None]
  - Asthenia [None]
  - Hepatic enzyme increased [None]
  - Diarrhoea [None]
  - Infection [None]

NARRATIVE: CASE EVENT DATE: 20171010
